FAERS Safety Report 9104014 (Version 2)
Quarter: 2013Q1

REPORT INFORMATION
  Report Type: Spontaneous
  Country: US (occurrence: US)
  Receive Date: 20130219
  Receipt Date: 20130301
  Transmission Date: 20140127
  Serious: Yes (Other)
  Sender: FDA-Public Use
  Company Number: US-BAYER-2012-086777

PATIENT
  Age: 32 Year
  Sex: Female

DRUGS (3)
  1. MIRENA [Suspect]
     Dosage: 20 MCG/24HR, CONT
     Route: 015
     Dates: start: 201012, end: 20120829
  2. CONCEPT [Concomitant]
  3. DOXYCYCLINE HYCLATE [Concomitant]

REACTIONS (7)
  - Device breakage [None]
  - Complication of device removal [None]
  - Device dislocation [None]
  - Device dislocation [None]
  - Procedural pain [None]
  - Nervousness [None]
  - Fear [None]
